FAERS Safety Report 5006168-0 (Version None)
Quarter: 2006Q1

REPORT INFORMATION
  Report Type: 
  Country: None (occurrence: None)
  Receive Date: 20060328
  Receipt Date: 20050628
  Transmission Date: 20060701
  Serious: Yes (Other)
  Sender: FDA-Public Use
  Company Number: K200500974

PATIENT
  Sex: Female

DRUGS (2)
  1. ALTACE [Suspect]
  2. FLEET PHOSPHO-SODA ^DEWITT^ (SODIUM PHOSPHATE MONOBASIC (ANHYDRATE), S [Suspect]
     Indication: COLONOSCOPY
     Dosage: ORAL
     Route: 048
     Dates: start: 20041013, end: 20041013

REACTIONS (1)
  - RENAL FAILURE [None]
